FAERS Safety Report 11333188 (Version 1)
Quarter: 2015Q3

REPORT INFORMATION
  Report Type: Spontaneous
  Country: US (occurrence: US)
  Receive Date: 20150803
  Receipt Date: 20150803
  Transmission Date: 20151125
  Serious: Yes (Hospitalization)
  Sender: FDA-Public Use
  Company Number: US-ELI_LILLY_AND_COMPANY-US200605004052

PATIENT
  Age: 47 Year
  Sex: Male
  Weight: 86.17 kg

DRUGS (4)
  1. ZYPREXA [Suspect]
     Active Substance: OLANZAPINE
     Dosage: 10 MG, UNKNOWN
     Dates: start: 19990520, end: 200006
  2. ZYPREXA [Suspect]
     Active Substance: OLANZAPINE
     Dosage: 3.5 MG, UNKNOWN
     Dates: start: 200109, end: 200303
  3. ZYPREXA [Suspect]
     Active Substance: OLANZAPINE
     Dosage: 5 MG, UNKNOWN
     Dates: start: 20030325, end: 20030524
  4. ZYPREXA [Suspect]
     Active Substance: OLANZAPINE
     Dosage: 2.5 MG, UNKNOWN
     Dates: start: 200011, end: 200108

REACTIONS (3)
  - Diabetes mellitus [Unknown]
  - Diabetes mellitus [Not Recovered/Not Resolved]
  - Weight increased [Unknown]

NARRATIVE: CASE EVENT DATE: 200012
